FAERS Safety Report 21135632 (Version 1)
Quarter: 2022Q3

REPORT INFORMATION
  Report Type: Spontaneous
  Country: US (occurrence: US)
  Receive Date: 20220727
  Receipt Date: 20220727
  Transmission Date: 20221027
  Serious: No
  Sender: FDA-Public Use
  Company Number: US-Accord-237392

PATIENT
  Sex: Female
  Weight: 56.70 kg

DRUGS (1)
  1. LETROZOLE [Suspect]
     Active Substance: LETROZOLE
     Indication: Breast cancer
     Dosage: 2.5MG, ONCE A DAY
     Route: 048
     Dates: start: 20210407

REACTIONS (2)
  - Urine abnormality [Not Recovered/Not Resolved]
  - Back pain [Not Recovered/Not Resolved]
